FAERS Safety Report 13054724 (Version 1)
Quarter: 2016Q4

REPORT INFORMATION
  Report Type: Spontaneous
  Country: US (occurrence: US)
  Receive Date: 20161222
  Receipt Date: 20161222
  Transmission Date: 20170207
  Serious: Yes (Life-Threatening)
  Sender: FDA-Public Use
  Company Number: None

PATIENT
  Age: 28 Year
  Sex: Female
  Weight: 57 kg

DRUGS (1)
  1. BUPRO (BUPRENORPHINE LOZENGE)AMEX PHARMACY FLORIDA [Suspect]
     Active Substance: BUPROPION
     Indication: PAIN
     Dosage: ?          OTHER FREQUENCY:4-6HRS PRN;?
     Route: 060
     Dates: start: 20140101

REACTIONS (2)
  - Respiratory arrest [None]
  - Overdose [None]

NARRATIVE: CASE EVENT DATE: 20161220
